FAERS Safety Report 7227859-7 (Version None)
Quarter: 2011Q1

REPORT INFORMATION
  Report Type: 
  Country: None (occurrence: None)
  Receive Date: 20110111
  Receipt Date: 20110111
  Transmission Date: 20110831
  Serious: Yes (Hospitalization)
  Sender: FDA-Public Use
  Company Number: None

PATIENT
  Age: 17 Year
  Sex: Male
  Weight: 68.8 kg

DRUGS (2)
  1. CEFTAZIDIME [Suspect]
     Indication: CYSTIC FIBROSIS
     Dosage: 2 GM Q8H IV
     Route: 042
     Dates: start: 20101119, end: 20101201
  2. CEFTAZIDIME [Suspect]
     Indication: CONDITION AGGRAVATED
     Dosage: 2 GM Q8H IV
     Route: 042
     Dates: start: 20101119, end: 20101201

REACTIONS (4)
  - RASH PRURITIC [None]
  - THROMBOSIS [None]
  - RESPIRATORY DISTRESS [None]
  - PETECHIAE [None]
